FAERS Safety Report 9461436 (Version 1)
Quarter: 2013Q3

REPORT INFORMATION
  Report Type: Spontaneous
  Country: US (occurrence: None)
  Receive Date: 20130814
  Receipt Date: 20130814
  Transmission Date: 20140515
  Serious: Yes (Disabling)
  Sender: FDA-Public Use
  Company Number: None

PATIENT
  Age: 55 Year
  Sex: Female
  Weight: 76.66 kg

DRUGS (1)
  1. CYMBALTA [Suspect]
     Indication: DEPRESSION
     Route: 048
     Dates: start: 2008

REACTIONS (8)
  - Mood altered [None]
  - Anxiety [None]
  - Suicidal ideation [None]
  - Drug withdrawal syndrome [None]
  - Pain in extremity [None]
  - Tremor [None]
  - Loss of employment [None]
  - Poverty [None]
